FAERS Safety Report 7361220-X (Version None)
Quarter: 2011Q1

REPORT INFORMATION
  Report Type: 
  Country: None (occurrence: None)
  Receive Date: 20110318
  Receipt Date: 20110225
  Transmission Date: 20110831
  Serious: No
  Sender: FDA-Public Use
  Company Number: US-BAYER-2011-017628

PATIENT
  Sex: Female
  Weight: 63 kg

DRUGS (2)
  1. ALEVE (CAPLET) [Suspect]
     Indication: SCIATICA
     Dosage: 2 DF, BID
     Route: 048
     Dates: end: 20110222
  2. MULTI-VITAMIN [Concomitant]
     Dosage: UNK

REACTIONS (1)
  - BLISTER [None]
